FAERS Safety Report 7189344-0 (Version None)
Quarter: 2010Q4

REPORT INFORMATION
  Report Type: 
  Country: None (occurrence: None)
  Receive Date: 20101222
  Receipt Date: 20100816
  Transmission Date: 20110411
  Serious: No
  Sender: FDA-Public Use
  Company Number: US-AMGEN-KDL428543

PATIENT

DRUGS (15)
  1. ENBREL [Suspect]
     Indication: RHEUMATOID ARTHRITIS
     Dosage: 50 MG, QWK
     Route: 058
     Dates: start: 20080715, end: 20100802
  2. ANTIHYPERTENSIVE MEDICATION NOS [Concomitant]
     Dosage: UNK UNK, UNK
  3. ANTIDEPRESSANT NOS [Concomitant]
     Dosage: UNK UNK, UNK
  4. HORMONE NOS [Concomitant]
     Dosage: UNK UNK, UNK
  5. ALLERGY MEDICATION [Concomitant]
     Dosage: UNK UNK, UNK
  6. PREDNISONE [Concomitant]
     Dosage: 60 MG, QD
  7. IBANDRONATE SODIUM [Concomitant]
  8. ESTRADIOL [Concomitant]
     Dosage: UNK UNK, UNK
  9. ACETYLSALICYLIC ACID [Concomitant]
  10. LORSARTAN POTASSIUM HYDROCHLORIDE [Concomitant]
  11. IBUPROFEN [Concomitant]
  12. TRIAMCINOLONE ACETONIDE [Concomitant]
  13. ASTELIN [Concomitant]
  14. NEFAZODONE HCL [Concomitant]
  15. DEXALTIN [Concomitant]

REACTIONS (7)
  - DRUG ERUPTION [None]
  - INCREASED APPETITE [None]
  - INSOMNIA [None]
  - RASH GENERALISED [None]
  - RASH PAPULAR [None]
  - SCAB [None]
  - URTICARIA [None]
